FAERS Safety Report 14965916 (Version 2)
Quarter: 2018Q2

REPORT INFORMATION
  Report Type: Spontaneous
  Country: US (occurrence: US)
  Receive Date: 20180602
  Receipt Date: 20180626
  Transmission Date: 20180711
  Serious: Yes (Other)
  Sender: FDA-Public Use
  Company Number: US-009507513-1805USA012445

PATIENT
  Age: 21 Year
  Sex: Female
  Weight: 97.51 kg

DRUGS (1)
  1. NEXPLANON [Suspect]
     Active Substance: ETONOGESTREL
     Indication: CONTRACEPTION
     Dosage: 68 MG (1 IMPLANT), UNK
     Route: 059
     Dates: start: 20180406

REACTIONS (6)
  - Complication associated with device [Recovered/Resolved]
  - Device difficult to use [Recovered/Resolved]
  - Urinary tract infection [Unknown]
  - Adverse event [Unknown]
  - Device deployment issue [Recovered/Resolved]
  - Implant site cellulitis [Recovered/Resolved]

NARRATIVE: CASE EVENT DATE: 2018
